FAERS Safety Report 23392887 (Version 3)
Quarter: 2024Q3

REPORT INFORMATION
  Report Type: Spontaneous
  Country: CA (occurrence: CA)
  Receive Date: 20240111
  Receipt Date: 20240716
  Transmission Date: 20241017
  Serious: Yes (Hospitalization, Other)
  Sender: BRISTOL MYERS SQUIBB
  Company Number: CA-BRISTOL-MYERS SQUIBB COMPANY-2024-005016

PATIENT
  Age: 48 Year
  Sex: Female
  Weight: 106 kg

DRUGS (148)
  1. PACLITAXEL [Suspect]
     Active Substance: PACLITAXEL
     Indication: Supportive care
     Route: 042
  2. PACLITAXEL [Suspect]
     Active Substance: PACLITAXEL
     Indication: Breast cancer
     Dosage: LIQUID INTRAVENOUS
     Route: 042
  3. PACLITAXEL [Suspect]
     Active Substance: PACLITAXEL
     Dosage: SOLUTION FOR INJECTION/INFUSION
     Route: 042
  4. PACLITAXEL [Suspect]
     Active Substance: PACLITAXEL
     Dosage: SOLUTION FOR INJECTION/INFUSION
     Route: 042
  5. PACLITAXEL [Suspect]
     Active Substance: PACLITAXEL
     Dosage: SOLUTION FOR INJECTION/INFUSION
     Route: 042
  6. PACLITAXEL [Suspect]
     Active Substance: PACLITAXEL
     Dosage: SOLUTION FOR INJECTION/INFUSION
     Route: 042
  7. PACLITAXEL [Suspect]
     Active Substance: PACLITAXEL
     Dosage: SOLUTION FOR INJECTION/INFUSION
     Route: 042
  8. PACLITAXEL [Suspect]
     Active Substance: PACLITAXEL
     Dosage: SOLUTION FOR INJECTION/INFUSION
     Route: 042
  9. PACLITAXEL [Suspect]
     Active Substance: PACLITAXEL
     Route: 042
  10. ACETAMINOPHEN AND CODEINE [Concomitant]
     Active Substance: ACETAMINOPHEN\CODEINE PHOSPHATE
     Indication: Tardive dyskinesia
     Dosage: ELX,USP160 MG-8MG/5ML
  11. ACETAMINOPHEN AND CODEINE [Concomitant]
     Active Substance: ACETAMINOPHEN\CODEINE PHOSPHATE
     Dosage: ELX,USP160 MG-8MG/5ML
  12. ACETAMINOPHEN AND CODEINE [Concomitant]
     Active Substance: ACETAMINOPHEN\CODEINE PHOSPHATE
     Dosage: FORMULATION: ELIXIR?ELX,USP160 MG-8MG/5ML
  13. ACETAMINOPHEN AND CODEINE [Concomitant]
     Active Substance: ACETAMINOPHEN\CODEINE PHOSPHATE
  14. ACETAMINOPHEN AND CODEINE [Concomitant]
     Active Substance: ACETAMINOPHEN\CODEINE PHOSPHATE
  15. ACETAMINOPHEN AND CODEINE [Concomitant]
     Active Substance: ACETAMINOPHEN\CODEINE PHOSPHATE
  16. ACETAMINOPHEN AND CODEINE [Concomitant]
     Active Substance: ACETAMINOPHEN\CODEINE PHOSPHATE
     Dosage: ELX,USP160 MG-8MG/5ML
  17. ACETAMINOPHEN AND CODEINE [Concomitant]
     Active Substance: ACETAMINOPHEN\CODEINE PHOSPHATE
  18. ACETAMINOPHEN AND CODEINE [Concomitant]
     Active Substance: ACETAMINOPHEN\CODEINE PHOSPHATE
     Dosage: ELIXIR
  19. BETAMETHASONE [Concomitant]
     Active Substance: BETAMETHASONE\BETAMETHASONE DIPROPIONATE
     Indication: Tardive dyskinesia
     Route: 048
  20. BETAMETHASONE [Concomitant]
     Active Substance: BETAMETHASONE\BETAMETHASONE DIPROPIONATE
  21. BETAMETHASONE [Concomitant]
     Active Substance: BETAMETHASONE\BETAMETHASONE DIPROPIONATE
     Route: 048
  22. BETAMETHASONE [Concomitant]
     Active Substance: BETAMETHASONE\BETAMETHASONE DIPROPIONATE
     Route: 048
  23. DEXAMETHASONE [Concomitant]
     Active Substance: DEXAMETHASONE
     Indication: Supportive care
     Route: 048
  24. DEXAMETHASONE [Concomitant]
     Active Substance: DEXAMETHASONE
     Route: 048
  25. DEXAMETHASONE [Concomitant]
     Active Substance: DEXAMETHASONE
     Route: 048
  26. DEXAMETHASONE [Concomitant]
     Active Substance: DEXAMETHASONE
     Route: 048
  27. DEXAMETHASONE [Concomitant]
     Active Substance: DEXAMETHASONE
     Route: 048
  28. DEXAMETHASONE [Concomitant]
     Active Substance: DEXAMETHASONE
     Route: 048
  29. DEXAMETHASONE [Concomitant]
     Active Substance: DEXAMETHASONE
     Route: 048
  30. DOXORUBICIN [Concomitant]
     Active Substance: DOXORUBICIN
     Indication: Breast cancer
     Route: 042
  31. DOXORUBICIN [Concomitant]
     Active Substance: DOXORUBICIN
     Route: 042
  32. DOXORUBICIN [Concomitant]
     Active Substance: DOXORUBICIN
     Route: 042
  33. DOXORUBICIN [Concomitant]
     Active Substance: DOXORUBICIN
     Dosage: SOLUTION INTRAVENOUS
     Route: 042
  34. DOXORUBICIN [Concomitant]
     Active Substance: DOXORUBICIN
     Route: 042
  35. DOXORUBICIN [Concomitant]
     Active Substance: DOXORUBICIN
     Route: 042
  36. EMEND [Concomitant]
     Active Substance: APREPITANT
     Indication: Supportive care
     Route: 048
  37. EMEND [Concomitant]
     Active Substance: APREPITANT
     Route: 048
  38. EMEND [Concomitant]
     Active Substance: APREPITANT
     Route: 048
  39. EMEND [Concomitant]
     Active Substance: APREPITANT
     Route: 048
  40. EMEND [Concomitant]
     Active Substance: APREPITANT
     Route: 048
  41. EMEND [Concomitant]
     Active Substance: APREPITANT
     Route: 048
  42. EMEND [Concomitant]
     Active Substance: APREPITANT
     Route: 048
  43. EMEND [Concomitant]
     Active Substance: APREPITANT
     Route: 048
  44. EMEND [Concomitant]
     Active Substance: APREPITANT
     Route: 048
  45. EMEND [Concomitant]
     Active Substance: APREPITANT
     Route: 048
  46. EMEND [Concomitant]
     Active Substance: APREPITANT
     Route: 048
  47. EMEND [Concomitant]
     Active Substance: APREPITANT
     Route: 048
  48. EMEND [Concomitant]
     Active Substance: APREPITANT
     Route: 048
  49. EMEND [Concomitant]
     Active Substance: APREPITANT
     Route: 048
  50. EMEND [Concomitant]
     Active Substance: APREPITANT
     Route: 048
  51. EMEND [Concomitant]
     Active Substance: APREPITANT
     Route: 048
  52. EMEND [Concomitant]
     Active Substance: APREPITANT
     Route: 048
  53. EMEND [Concomitant]
     Active Substance: APREPITANT
     Route: 048
  54. EMEND [Concomitant]
     Active Substance: APREPITANT
     Route: 048
  55. EMEND [Concomitant]
     Active Substance: APREPITANT
     Route: 048
  56. EMEND [Concomitant]
     Active Substance: APREPITANT
     Route: 048
  57. EMEND [Concomitant]
     Active Substance: APREPITANT
     Route: 048
  58. ENOXAPARIN [Concomitant]
     Active Substance: ENOXAPARIN
     Indication: Tardive dyskinesia
     Route: 058
  59. ENOXAPARIN [Concomitant]
     Active Substance: ENOXAPARIN
     Route: 058
  60. ENOXAPARIN [Concomitant]
     Active Substance: ENOXAPARIN
     Route: 058
  61. ENOXAPARIN [Concomitant]
     Active Substance: ENOXAPARIN
     Route: 058
  62. ENOXAPARIN [Concomitant]
     Active Substance: ENOXAPARIN
     Route: 058
  63. LEVOFLOXACIN [Concomitant]
     Active Substance: LEVOFLOXACIN
     Indication: Tardive dyskinesia
     Route: 048
  64. LEVOFLOXACIN [Concomitant]
     Active Substance: LEVOFLOXACIN
     Route: 048
  65. LEVOFLOXACIN [Concomitant]
     Active Substance: LEVOFLOXACIN
     Route: 048
  66. LEVOFLOXACIN [Concomitant]
     Active Substance: LEVOFLOXACIN
     Route: 048
  67. LEVOFLOXACIN [Concomitant]
     Active Substance: LEVOFLOXACIN
     Route: 048
  68. LEVOFLOXACIN [Concomitant]
     Active Substance: LEVOFLOXACIN
     Route: 048
  69. LORAZEPAM [Concomitant]
     Active Substance: LORAZEPAM
     Indication: Tardive dyskinesia
     Route: 048
  70. LORAZEPAM [Concomitant]
     Active Substance: LORAZEPAM
     Route: 048
  71. LORAZEPAM [Concomitant]
     Active Substance: LORAZEPAM
     Route: 048
  72. LORAZEPAM [Concomitant]
     Active Substance: LORAZEPAM
     Route: 048
  73. LORAZEPAM [Concomitant]
     Active Substance: LORAZEPAM
     Route: 048
  74. LORAZEPAM [Concomitant]
     Active Substance: LORAZEPAM
     Route: 048
  75. LORAZEPAM [Concomitant]
     Active Substance: LORAZEPAM
     Route: 048
  76. METOCLOPRAMIDE [Concomitant]
     Active Substance: METOCLOPRAMIDE
     Indication: Tardive dyskinesia
     Route: 048
  77. METOCLOPRAMIDE [Concomitant]
     Active Substance: METOCLOPRAMIDE
     Route: 048
  78. METOCLOPRAMIDE [Concomitant]
     Active Substance: METOCLOPRAMIDE
     Route: 048
  79. METOCLOPRAMIDE [Concomitant]
     Active Substance: METOCLOPRAMIDE
     Route: 048
  80. METOCLOPRAMIDE [Concomitant]
     Active Substance: METOCLOPRAMIDE
     Route: 048
  81. NEULASTA [Concomitant]
     Active Substance: PEGFILGRASTIM
     Indication: Supportive care
     Dosage: SOLUTION SUBCUTANEOUS
     Route: 058
  82. NEULASTA [Concomitant]
     Active Substance: PEGFILGRASTIM
     Dosage: SOLUTION SUBCUTANEOUS
     Route: 058
  83. NEULASTA [Concomitant]
     Active Substance: PEGFILGRASTIM
     Dosage: SOLUTION SUBCUTANEOUS
     Route: 058
  84. NEULASTA [Concomitant]
     Active Substance: PEGFILGRASTIM
     Dosage: SOLUTION SUBCUTANEOUS
     Route: 058
  85. NEULASTA [Concomitant]
     Active Substance: PEGFILGRASTIM
     Dosage: SOLUTION SUBCUTANEOUS
     Route: 058
  86. NEULASTA [Concomitant]
     Active Substance: PEGFILGRASTIM
     Dosage: SOLUTION SUBCUTANEOUS
     Route: 058
  87. NEULASTA [Concomitant]
     Active Substance: PEGFILGRASTIM
     Dosage: SOLUTION SUBCUTANEOUS
     Route: 058
  88. NEULASTA [Concomitant]
     Active Substance: PEGFILGRASTIM
     Dosage: SOLUTION SUBCUTANEOUS
     Route: 058
  89. NEULASTA [Concomitant]
     Active Substance: PEGFILGRASTIM
     Route: 058
  90. NEUPOGEN [Concomitant]
     Active Substance: FILGRASTIM
     Indication: Supportive care
     Route: 048
  91. NEUPOGEN [Concomitant]
     Active Substance: FILGRASTIM
     Route: 048
  92. NEUPOGEN [Concomitant]
     Active Substance: FILGRASTIM
  93. NEUPOGEN [Concomitant]
     Active Substance: FILGRASTIM
  94. NEUPOGEN [Concomitant]
     Active Substance: FILGRASTIM
     Dosage: SOLUTION  INTRAVENOUS
     Route: 048
  95. NEUPOGEN [Concomitant]
     Active Substance: FILGRASTIM
  96. NEUPOGEN [Concomitant]
     Active Substance: FILGRASTIM
     Dosage: SOLUTION INTRAVENOUS
  97. NEUPOGEN [Concomitant]
     Active Substance: FILGRASTIM
     Route: 048
  98. ONDANSETRON [Concomitant]
     Active Substance: ONDANSETRON
     Indication: Supportive care
     Dosage: ORODISPERSIBLE FILM
     Route: 048
  99. ONDANSETRON [Concomitant]
     Active Substance: ONDANSETRON
     Dosage: ORODISPERSIBLE FILM
     Route: 048
  100. ONDANSETRON [Concomitant]
     Active Substance: ONDANSETRON
     Dosage: ORODISPERSIBLE FILM
     Route: 048
  101. ONDANSETRON [Concomitant]
     Active Substance: ONDANSETRON
     Dosage: ORODISPERSIBLE FILM
     Route: 048
  102. ONDANSETRON [Concomitant]
     Active Substance: ONDANSETRON
     Dosage: ORODISPERSIBLE FILM
     Route: 048
  103. ONDANSETRON [Concomitant]
     Active Substance: ONDANSETRON
     Dosage: ORODISPERSIBLE FILM
     Route: 048
  104. ONDANSETRON [Concomitant]
     Active Substance: ONDANSETRON
     Route: 048
  105. ONDANSETRON [Concomitant]
     Active Substance: ONDANSETRON
     Dosage: ORODISPERSIBLE FILM
     Route: 048
  106. ONDANSETRON [Concomitant]
     Active Substance: ONDANSETRON
     Dosage: ORODISPERSIBLE FILM
     Route: 048
  107. ONDANSETRON [Concomitant]
     Active Substance: ONDANSETRON
     Dosage: ORODISPERSIBLE FILM
     Route: 048
  108. ONDANSETRON [Concomitant]
     Active Substance: ONDANSETRON
     Dosage: ORODISPERSIBLE FILM
     Route: 048
  109. ONDANSETRON [Concomitant]
     Active Substance: ONDANSETRON
     Dosage: ORODISPERSIBLE FILM
     Route: 048
  110. ONDANSETRON [Concomitant]
     Active Substance: ONDANSETRON
  111. ONDANSETRON [Concomitant]
     Active Substance: ONDANSETRON
     Route: 048
  112. CYCLOPHOSPHAMIDE [Concomitant]
     Active Substance: CYCLOPHOSPHAMIDE
     Indication: Tardive dyskinesia
     Dosage: POWDER FOR SOLUTION FOR INJECTION/INFUSION
     Route: 042
  113. CYCLOPHOSPHAMIDE [Concomitant]
     Active Substance: CYCLOPHOSPHAMIDE
     Indication: Breast cancer
     Dosage: POWDER FOR SOLUTION FOR INJECTION/INFUSION
     Route: 042
  114. CYCLOPHOSPHAMIDE [Concomitant]
     Active Substance: CYCLOPHOSPHAMIDE
     Dosage: POWDER FOR SOLUTION FOR INJECTION/INFUSION
     Route: 042
  115. CYCLOPHOSPHAMIDE [Concomitant]
     Active Substance: CYCLOPHOSPHAMIDE
     Dosage: POWDER FOR SOLUTION FOR INJECTION/INFUSION
     Route: 042
  116. CYCLOPHOSPHAMIDE [Concomitant]
     Active Substance: CYCLOPHOSPHAMIDE
     Dosage: POWDER FOR SOLUTION FOR INJECTION/INFUSION
     Route: 042
  117. CYCLOPHOSPHAMIDE [Concomitant]
     Active Substance: CYCLOPHOSPHAMIDE
     Dosage: POWDER FOR SOLUTION FOR INJECTION/INFUSION
     Route: 042
  118. RANITIDINE HYDROCHLORIDE [Concomitant]
     Active Substance: RANITIDINE HYDROCHLORIDE
     Indication: Tardive dyskinesia
     Route: 048
  119. RANITIDINE HYDROCHLORIDE [Concomitant]
     Active Substance: RANITIDINE HYDROCHLORIDE
     Route: 048
  120. RANITIDINE HYDROCHLORIDE [Concomitant]
     Active Substance: RANITIDINE HYDROCHLORIDE
     Route: 048
  121. RANITIDINE HYDROCHLORIDE [Concomitant]
     Active Substance: RANITIDINE HYDROCHLORIDE
     Route: 048
  122. RANITIDINE HYDROCHLORIDE [Concomitant]
     Active Substance: RANITIDINE HYDROCHLORIDE
     Route: 048
  123. RANITIDINE HYDROCHLORIDE [Concomitant]
     Active Substance: RANITIDINE HYDROCHLORIDE
     Route: 048
  124. RANITIDINE HYDROCHLORIDE [Concomitant]
     Active Substance: RANITIDINE HYDROCHLORIDE
     Route: 048
  125. TRASTUZUMAB [Concomitant]
     Active Substance: TRASTUZUMAB
     Indication: Tardive dyskinesia
  126. TRASTUZUMAB [Concomitant]
     Active Substance: TRASTUZUMAB
  127. TRASTUZUMAB [Concomitant]
     Active Substance: TRASTUZUMAB
  128. TRASTUZUMAB [Concomitant]
     Active Substance: TRASTUZUMAB
  129. TRASTUZUMAB [Concomitant]
     Active Substance: TRASTUZUMAB
  130. TRASTUZUMAB [Concomitant]
     Active Substance: TRASTUZUMAB
  131. TRASTUZUMAB [Concomitant]
     Active Substance: TRASTUZUMAB
  132. TRASTUZUMAB [Concomitant]
     Active Substance: TRASTUZUMAB
  133. TRASTUZUMAB [Concomitant]
     Active Substance: TRASTUZUMAB
  134. TRASTUZUMAB [Concomitant]
     Active Substance: TRASTUZUMAB
  135. TRASTUZUMAB [Concomitant]
     Active Substance: TRASTUZUMAB
     Route: 048
  136. APREPITANT [Concomitant]
     Active Substance: APREPITANT
     Indication: Supportive care
     Route: 048
  137. APREPITANT [Concomitant]
     Active Substance: APREPITANT
     Route: 048
  138. APREPITANT [Concomitant]
     Active Substance: APREPITANT
     Route: 048
  139. APREPITANT [Concomitant]
     Active Substance: APREPITANT
     Route: 048
  140. APREPITANT [Concomitant]
     Active Substance: APREPITANT
     Route: 048
  141. APREPITANT [Concomitant]
     Active Substance: APREPITANT
     Route: 048
  142. CYCLOPHOSPHAMIDE [Concomitant]
     Active Substance: CYCLOPHOSPHAMIDE
     Indication: Tardive dyskinesia
  143. CYCLOPHOSPHAMIDE [Concomitant]
     Active Substance: CYCLOPHOSPHAMIDE
     Indication: Breast cancer female
     Route: 042
  144. FILGRASTIM [Concomitant]
     Active Substance: FILGRASTIM
     Indication: Supportive care
     Route: 048
  145. FILGRASTIM [Concomitant]
     Active Substance: FILGRASTIM
  146. PEGFILGRASTIM [Concomitant]
     Active Substance: PEGFILGRASTIM
     Indication: Product used for unknown indication
     Route: 058
  147. RANITIDINE [Concomitant]
     Active Substance: RANITIDINE
     Indication: Tardive dyskinesia
     Route: 048
  148. ACETAMINOPHEN [Concomitant]
     Active Substance: ACETAMINOPHEN
     Indication: Tardive dyskinesia
     Route: 048

REACTIONS (12)
  - Atelectasis [Recovered/Resolved]
  - Cough [Recovered/Resolved]
  - Dyspnoea [Recovered/Resolved]
  - Fatigue [Recovered/Resolved]
  - Gastrointestinal disorder [Recovered/Resolved]
  - Hypoxia [Recovered/Resolved]
  - Nausea [Recovered/Resolved]
  - Off label use [Unknown]
  - Pyrexia [Recovered/Resolved]
  - Rash [Recovered/Resolved]
  - Hospitalisation [Recovered/Resolved]
  - Computerised tomogram thorax abnormal [Recovered/Resolved]
